FAERS Safety Report 22211422 (Version 1)
Quarter: 2023Q2

REPORT INFORMATION
  Report Type: Spontaneous
  Country: GB (occurrence: GB)
  Receive Date: 20230414
  Receipt Date: 20230414
  Transmission Date: 20230722
  Serious: Yes (Other)
  Sender: FDA-Public Use
  Company Number: None

PATIENT
  Age: 61 Year
  Sex: Female

DRUGS (7)
  1. GADOTERIDOL [Suspect]
     Active Substance: GADOTERIDOL
     Indication: Magnetic resonance imaging
     Dosage: BASED ON WEIGHT ON DAY 80 KG
  2. ASPIRIN [Concomitant]
     Active Substance: ASPIRIN
  3. CHOLECALCIFEROL [Concomitant]
     Active Substance: CHOLECALCIFEROL
  4. HYDROXYCHLOROQUINE [Concomitant]
     Active Substance: HYDROXYCHLOROQUINE
     Indication: Undifferentiated connective tissue disease
  5. OMEPRAZOLE [Concomitant]
     Active Substance: OMEPRAZOLE
  6. PREDNISOLONE [Concomitant]
     Active Substance: PREDNISOLONE
  7. POTASSIUM BICARBONATE\POTASSIUM CHLORIDE [Concomitant]
     Active Substance: POTASSIUM BICARBONATE\POTASSIUM CHLORIDE

REACTIONS (18)
  - Presyncope [Recovered/Resolved]
  - Injection site pain [Not Recovered/Not Resolved]
  - Injection site discharge [Recovered/Resolved]
  - Injection site warmth [Not Recovered/Not Resolved]
  - Abdominal distension [Recovered/Resolved]
  - Arthralgia [Not Recovered/Not Resolved]
  - Pain in extremity [Not Recovered/Not Resolved]
  - Pain in extremity [Not Recovered/Not Resolved]
  - Burning sensation [Not Recovered/Not Resolved]
  - Diaphragmalgia [Recovered/Resolved]
  - Chest discomfort [Recovering/Resolving]
  - Musculoskeletal discomfort [Recovered/Resolved]
  - Visceral pain [Recovering/Resolving]
  - Lymphopenia [Recovering/Resolving]
  - Thirst [Not Recovered/Not Resolved]
  - Tinnitus [Recovering/Resolving]
  - Renal pain [Not Recovered/Not Resolved]
  - Injection site discolouration [Unknown]

NARRATIVE: CASE EVENT DATE: 20220101
